FAERS Safety Report 4824343-2 (Version None)
Quarter: 2005Q4

REPORT INFORMATION
  Report Type: 
  Country: None (occurrence: None)
  Receive Date: 20051109
  Receipt Date: 20051030
  Transmission Date: 20060501
  Serious: Yes (Hospitalization, Other)
  Sender: FDA-Public Use
  Company Number: PHEH2005US12060

PATIENT
  Age: 71 Year
  Sex: Male

DRUGS (3)
  1. GLEEVEC [Suspect]
     Indication: CHRONIC MYELOID LEUKAEMIA
     Dosage: 400 MG, QD
     Route: 048
     Dates: end: 20051001
  2. LIPITOR [Concomitant]
  3. TENORETIC 100 [Concomitant]

REACTIONS (2)
  - COLON CANCER [None]
  - COLON OPERATION [None]
